FAERS Safety Report 4515947-5 (Version None)
Quarter: 2004Q4

REPORT INFORMATION
  Report Type: 
  Country: None (occurrence: None)
  Receive Date: 20041129
  Receipt Date: 20041122
  Transmission Date: 20050328
  Serious: Yes (Hospitalization)
  Sender: FDA-Public Use
  Company Number: 2004-09-0283

PATIENT
  Age: 49 Year
  Sex: Female
  Weight: 69 kg

DRUGS (4)
  1. REBETOL [Suspect]
     Indication: HEPATITIS C
     Dosage: 400 MG ORAL
     Route: 048
     Dates: start: 20021128, end: 20030412
  2. INTRON A [Suspect]
     Indication: HEPATITIS C
     Dosage: 10-6MU QD TIW INTRAMUSCULAR; 10 MU QD INTRAMUSCULAR; 6 MU TIW INTRAMUSCULAR
     Route: 030
     Dates: start: 20021128, end: 20021207
  3. INTRON A [Suspect]
     Indication: HEPATITIS C
     Dosage: 10-6MU QD TIW INTRAMUSCULAR; 10 MU QD INTRAMUSCULAR; 6 MU TIW INTRAMUSCULAR
     Route: 030
     Dates: start: 20021128, end: 20030409
  4. INTRON A [Suspect]
     Indication: HEPATITIS C
     Dosage: 10-6MU QD TIW INTRAMUSCULAR; 10 MU QD INTRAMUSCULAR; 6 MU TIW INTRAMUSCULAR
     Route: 030
     Dates: start: 20021208, end: 20030409

REACTIONS (12)
  - DRUG HYPERSENSITIVITY [None]
  - DRUG INEFFECTIVE [None]
  - FLUSHING [None]
  - INFECTION [None]
  - INJECTION SITE ABSCESS [None]
  - INJECTION SITE INDURATION [None]
  - INJECTION SITE PAIN [None]
  - LYMPHOCYTIC INFILTRATION [None]
  - MEDICATION ERROR [None]
  - PANNICULITIS [None]
  - PYREXIA [None]
  - SKIN GRAFT [None]
